FAERS Safety Report 10190489 (Version 1)
Quarter: 2014Q2

REPORT INFORMATION
  Report Type: Spontaneous
  Country: US (occurrence: US)
  Receive Date: 20140522
  Receipt Date: 20140522
  Transmission Date: 20141212
  Serious: Yes (Hospitalization)
  Sender: FDA-Public Use
  Company Number: US-SA-2013SA104505

PATIENT
  Age: 64 Year
  Sex: Male
  Weight: 74.4 kg

DRUGS (16)
  1. OXALIPLATIN [Suspect]
     Indication: COLORECTAL CANCER METASTATIC
     Dosage: 1 IN 2 WEEKS?FORM: LIQUID
     Route: 042
     Dates: start: 20130925, end: 20130925
  2. OXALIPLATIN [Suspect]
     Indication: COLORECTAL CANCER METASTATIC
     Dosage: 1 IN 2 WEEKS?FORM: LIQUID
     Route: 042
     Dates: start: 20131023, end: 20131025
  3. OXALIPLATIN [Suspect]
     Indication: COLORECTAL CANCER METASTATIC
     Dosage: FORM : LIQUID
     Route: 042
     Dates: start: 20131120
  4. FLUOROURACIL [Suspect]
     Indication: COLORECTAL CANCER METASTATIC
     Dosage: 1 IN 2 WEEKS?INFUSION
     Route: 041
     Dates: start: 20130925, end: 20130925
  5. FLUOROURACIL [Suspect]
     Indication: COLORECTAL CANCER METASTATIC
     Dosage: 1 IN 2 WEEKS?INFUSION
     Route: 042
     Dates: start: 20131023, end: 20131023
  6. FLUOROURACIL [Suspect]
     Indication: COLORECTAL CANCER METASTATIC
     Route: 042
     Dates: start: 20131120
  7. BEVACIZUMAB [Suspect]
     Indication: COLON CANCER
     Dosage: 1 IN 2 WEEK
     Route: 042
     Dates: start: 20130925, end: 20130925
  8. BEVACIZUMAB [Suspect]
     Indication: COLON CANCER
     Dosage: 1 IN 2 WEEK
     Route: 042
     Dates: start: 20131120
  9. BEVACIZUMAB [Suspect]
     Indication: COLON CANCER
     Dosage: 1 IN 2 WEEK
     Route: 042
     Dates: start: 20131023, end: 20131023
  10. IRINOTECAN HYDROCHLORIDE [Suspect]
     Indication: COLORECTAL CANCER METASTATIC
     Dosage: 1 IN 2 WEEK?FORM: LIQUID
     Route: 042
     Dates: start: 20130925, end: 20130925
  11. IRINOTECAN HYDROCHLORIDE [Suspect]
     Indication: COLORECTAL CANCER METASTATIC
     Dosage: 1 IN 2 WEEK?FORM: LIQUID
     Route: 042
     Dates: start: 20131023, end: 20131120
  12. CALCIUM FOLINATE [Suspect]
     Indication: COLORECTAL CANCER METASTATIC
     Dosage: FORM: LIQUID?FREQUENCY: 1 IN 2 WEEK
     Route: 042
     Dates: start: 20130925, end: 20130925
  13. CALCIUM FOLINATE [Suspect]
     Indication: COLORECTAL CANCER METASTATIC
     Dosage: FORM: LIQUID?FREQUENCY: 1 IN 2 WEEK
     Route: 042
     Dates: start: 20131023, end: 20131023
  14. CALCIUM FOLINATE [Suspect]
     Indication: COLORECTAL CANCER METASTATIC
     Dosage: FORM: LIQUID
     Route: 042
     Dates: start: 20131120
  15. LEUCOVORIN [Concomitant]
     Indication: COLORECTAL CANCER METASTATIC
     Dosage: TWO WEEKLY
     Route: 042
     Dates: start: 20130925
  16. LEUCOVORIN [Concomitant]
     Indication: COLORECTAL CANCER METASTATIC
     Dosage: 1 IN 2 WEEKS
     Route: 042
     Dates: start: 20130925, end: 20130925

REACTIONS (2)
  - Abdominal pain [Recovered/Resolved]
  - Hypokalaemia [Recovered/Resolved]
